FAERS Safety Report 11644734 (Version 2)
Quarter: 2016Q1

REPORT INFORMATION
  Report Type: Spontaneous
  Country: JP (occurrence: JP)
  Receive Date: 20151020
  Receipt Date: 20160311
  Transmission Date: 20160525
  Serious: Yes (Hospitalization)
  Sender: FDA-Public Use
  Company Number: JP-GILEAD-2015-0176828

PATIENT
  Age: 74 Year
  Sex: Female

DRUGS (7)
  1. SOVALDI [Suspect]
     Active Substance: SOFOSBUVIR
     Indication: CHRONIC HEPATITIS C
     Dosage: 400 MG, QD
     Route: 048
     Dates: start: 20150928
  2. NEXIUM [Concomitant]
     Active Substance: ESOMEPRAZOLE MAGNESIUM
     Dosage: UNK
     Route: 065
  3. VIVIANT [Concomitant]
     Active Substance: BAZEDOXIFENE
     Dosage: UNK
     Route: 065
  4. EDIROL [Concomitant]
     Active Substance: ELDECALCITOL
     Dosage: UNK
     Route: 065
  5. BLOPRESS [Concomitant]
     Active Substance: CANDESARTAN CILEXETIL
     Dosage: UNK
     Route: 065
  6. AMLODIPINE                         /00972402/ [Concomitant]
     Active Substance: AMLODIPINE BESYLATE
     Dosage: UNK
     Route: 065
  7. RIBAVIRIN CT [Concomitant]
     Dosage: 600 MG, QD
     Route: 048
     Dates: start: 20150928

REACTIONS (1)
  - Drug eruption [Recovered/Resolved]
